FAERS Safety Report 7530415-4 (Version None)
Quarter: 2011Q2

REPORT INFORMATION
  Report Type: 
  Country: None (occurrence: None)
  Receive Date: 20110607
  Receipt Date: 20110531
  Transmission Date: 20111010
  Serious: Yes (Death, Hospitalization)
  Sender: FDA-Public Use
  Company Number: US-CEPHALON-US023077

PATIENT
  Age: 27 Year
  Sex: Female

DRUGS (1)
  1. ARSENIC TRIOXIDE [Suspect]
     Indication: ACUTE PROMYELOCYTIC LEUKAEMIA
     Route: 042

REACTIONS (4)
  - CEREBRAL INFARCTION [None]
  - LEUKOSTASIS [None]
  - LEUKOCYTOSIS [None]
  - DISSEMINATED INTRAVASCULAR COAGULATION [None]
